FAERS Safety Report 6236444-5 (Version None)
Quarter: 2009Q2

REPORT INFORMATION
  Report Type: 
  Country: None (occurrence: None)
  Receive Date: 20090619
  Receipt Date: 20090610
  Transmission Date: 20091009
  Serious: Yes (Other)
  Sender: FDA-Public Use
  Company Number: GB-PFIZER INC-2009200162

PATIENT
  Age: 56 Year

DRUGS (6)
  1. VIAGRA [Suspect]
     Indication: ERECTILE DYSFUNCTION
     Dosage: 100 MG, UNK
     Route: 048
     Dates: start: 20010307
  2. SIMVASTATIN [Interacting]
     Dosage: 10 MG, 1X/DAY
     Route: 048
     Dates: start: 20071207, end: 20080201
  3. PRAVASTATIN [Interacting]
     Dosage: 10 MG, 1X/DAY
     Route: 048
     Dates: start: 20080201, end: 20080305
  4. EZETIMIBE [Interacting]
     Dosage: 10 MG, 1X/DAY
     Route: 048
     Dates: start: 20080305, end: 20090107
  5. TROSPIUM [Concomitant]
     Dosage: 20 MG, 2X/DAY
     Dates: start: 20010307
  6. ACETYLSALICYLIC ACID [Concomitant]
     Indication: CARDIOVASCULAR EVENT PROPHYLAXIS
     Dosage: 75 MG, 1X/DAY
     Dates: start: 20080118

REACTIONS (3)
  - BLOOD PRESSURE ABNORMAL [None]
  - DRUG INEFFECTIVE [None]
  - DRUG INTERACTION [None]
